FAERS Safety Report 10185048 (Version 2)
Quarter: 2014Q2

REPORT INFORMATION
  Report Type: Report from Study
  Country: JP (occurrence: JP)
  Receive Date: 20140521
  Receipt Date: 20140609
  Transmission Date: 20141212
  Serious: Yes (Hospitalization)
  Sender: FDA-Public Use
  Company Number: PHHO2014JP007066

PATIENT
  Age: 79 Year
  Sex: Female
  Weight: 47 kg

DRUGS (6)
  1. ACLASTA/ZOLEDRONATE [Suspect]
     Indication: OSTEOPOROSIS
     Dosage: 5.33 MG, UNK
     Route: 042
     Dates: start: 20120905, end: 20120905
  2. ACLASTA/ZOLEDRONATE [Suspect]
     Dosage: 5.33 MG, UNK
     Route: 042
     Dates: start: 20130903, end: 20130903
  3. ACLASTA/ZOLEDRONATE [Suspect]
     Dosage: 5.33 MG, UNK
     Route: 042
  4. WADACALCIUM [Suspect]
     Indication: OSTEOPOROSIS
     Dosage: 4 DF, 1/1 DAY
     Route: 048
     Dates: start: 20120727
  5. SANCOBA [Suspect]
     Indication: ASTHENOPIA
     Route: 047
  6. MILTAX [Suspect]
     Indication: BACK PAIN
     Route: 062

REACTIONS (1)
  - Lymphoma [Unknown]
